FAERS Safety Report 14093410 (Version 1)
Quarter: 2017Q4

REPORT INFORMATION
  Report Type: Spontaneous
  Country: US (occurrence: US)
  Receive Date: 20171016
  Receipt Date: 20171016
  Transmission Date: 20180321
  Serious: Yes (Other)
  Sender: FDA-Public Use
  Company Number: None

PATIENT
  Age: 67 Year
  Sex: Male
  Weight: 94.05 kg

DRUGS (5)
  1. FENTANYL TRANSDERMAL SYSTEM [Suspect]
     Active Substance: FENTANYL
     Indication: NEURALGIA
     Dosage: ?          OTHER STRENGTH:MCG/H;QUANTITY:1 PATCH(ES);OTHER FREQUENCY:72 HRS;?
     Route: 062
     Dates: start: 20171005, end: 20171013
  2. GABAPENTIN. [Concomitant]
     Active Substance: GABAPENTIN
  3. ATORVASTATIN [Concomitant]
     Active Substance: ATORVASTATIN
  4. HYDROCODONE/ACETAMINOPHEN [Concomitant]
     Active Substance: ACETAMINOPHEN\HYDROCODONE
  5. FENTANYL TRANSDERMAL SYSTEM [Suspect]
     Active Substance: FENTANYL
     Indication: AMPUTATION STUMP PAIN
     Dosage: ?          OTHER STRENGTH:MCG/H;QUANTITY:1 PATCH(ES);OTHER FREQUENCY:72 HRS;?
     Route: 062
     Dates: start: 20171005, end: 20171013

REACTIONS (5)
  - Product quality issue [None]
  - Somnolence [None]
  - Nausea [None]
  - Application site burn [None]
  - Accidental overdose [None]

NARRATIVE: CASE EVENT DATE: 20171013
